FAERS Safety Report 7319397-8 (Version None)
Quarter: 2011Q1

REPORT INFORMATION
  Report Type: 
  Country: None (occurrence: None)
  Receive Date: 20110228
  Receipt Date: 20100304
  Transmission Date: 20110831
  Serious: No
  Sender: FDA-Public Use
  Company Number: A0848364A

PATIENT
  Age: 38 Year
  Sex: Female
  Weight: 50 kg

DRUGS (5)
  1. WELLBUTRIN [Suspect]
     Route: 048
  2. LEVOTHYROXINE SODIUM [Concomitant]
  3. LAMICTAL [Suspect]
     Indication: PARTIAL SEIZURES
     Route: 048
     Dates: start: 19980101
  4. LEXAPRO [Concomitant]
  5. RITALIN [Concomitant]

REACTIONS (12)
  - AGITATION [None]
  - HOSTILITY [None]
  - DEPRESSION [None]
  - ADVERSE REACTION [None]
  - PERSONALITY CHANGE [None]
  - CONFUSIONAL STATE [None]
  - DISSOCIATION [None]
  - SELF ESTEEM INFLATED [None]
  - ANXIETY [None]
  - FATIGUE [None]
  - TINNITUS [None]
  - NEGATIVE THOUGHTS [None]
